FAERS Safety Report 20551878 (Version 1)
Quarter: 2022Q1

REPORT INFORMATION
  Report Type: Spontaneous
  Country: FR (occurrence: FR)
  Receive Date: 20220304
  Receipt Date: 20220304
  Transmission Date: 20220423
  Serious: Yes (Congenital Anomaly, Other)
  Sender: FDA-Public Use
  Company Number: FR-ABBVIE-22K-056-4295918-00

PATIENT
  Sex: Male
  Weight: 2.02 kg

DRUGS (2)
  1. VALPROATE SODIUM [Suspect]
     Active Substance: VALPROATE SODIUM
     Indication: Maternal exposure timing unspecified
     Route: 064
  2. ATROPA BELLADONNA\CAFFEINE\PHENOBARBITAL [Suspect]
     Active Substance: ATROPA BELLADONNA\CAFFEINE\PHENOBARBITAL
     Indication: Maternal exposure timing unspecified
     Route: 064

REACTIONS (50)
  - Foetal anticonvulsant syndrome [Unknown]
  - Foetal exposure during pregnancy [Unknown]
  - Congenital hand malformation [Unknown]
  - Hypospadias [Unknown]
  - Lower respiratory tract congestion [Unknown]
  - Congenital myopia [Unknown]
  - Dysmorphism [Unknown]
  - Bronchopulmonary disease [Unknown]
  - Behaviour disorder [Unknown]
  - Personal relationship issue [Unknown]
  - Anxiety [Unknown]
  - Talipes [Unknown]
  - Congenital tracheomalacia [Unknown]
  - Cough [Unknown]
  - Ear infection [Unknown]
  - Bronchitis [Unknown]
  - Congenital inguinal hernia [Unknown]
  - Musculoskeletal stiffness [Unknown]
  - Balance disorder [Unknown]
  - Sleep disorder [Unknown]
  - Catarrh [Unknown]
  - Neonatal hypoacusis [Unknown]
  - Memory impairment [Unknown]
  - Bronchospasm [Unknown]
  - Cryptorchism [Unknown]
  - Joint stiffness [Unknown]
  - Febrile convulsion [Unknown]
  - Limb malformation [Unknown]
  - Joint laxity [Unknown]
  - Dysphonia [Unknown]
  - Impulsive behaviour [Unknown]
  - Psychomotor skills impaired [Unknown]
  - Learning disorder [Unknown]
  - Dysgraphia [Unknown]
  - Limb hypoplasia congenital [Unknown]
  - Muscle rigidity [Unknown]
  - Cardiac murmur [Unknown]
  - Bronchopneumopathy [Unknown]
  - Dysphemia [Unknown]
  - Growth retardation [Unknown]
  - Pectus excavatum [Unknown]
  - Psychomotor retardation [Unknown]
  - Loss of personal independence in daily activities [Unknown]
  - Educational problem [Unknown]
  - Fine motor skill dysfunction [Unknown]
  - Supernumerary vertebra [Unknown]
  - Camptodactyly congenital [Unknown]
  - Camptodactyly congenital [Unknown]
  - Anodontia [Unknown]
  - Foetal exposure during pregnancy [Unknown]
